FAERS Safety Report 5035043-0 (Version None)
Quarter: 2006Q2

REPORT INFORMATION
  Report Type: 
  Country: None (occurrence: None)
  Receive Date: 20060622
  Receipt Date: 20060615
  Transmission Date: 20061013
  Serious: Yes (Death)
  Sender: FDA-Public Use
  Company Number: 2006-143918-NL

PATIENT
  Age: 33 Year
  Sex: Female

DRUGS (3)
  1. DESOLETT [Suspect]
     Indication: CONTRACEPTION
     Dosage: DF
     Route: 048
     Dates: start: 19971104, end: 19981122
  2. FORMOTEROL FUMARATE [Concomitant]
  3. BUDESONIDE [Concomitant]

REACTIONS (5)
  - ASTHMA [None]
  - ATRIAL SEPTAL DEFECT [None]
  - DILATATION VENTRICULAR [None]
  - PULMONARY EMBOLISM [None]
  - RESPIRATORY ARREST [None]
